FAERS Safety Report 17112664 (Version 1)
Quarter: 2019Q4

REPORT INFORMATION
  Report Type: Spontaneous
  Country: US (occurrence: US)
  Receive Date: 20191204
  Receipt Date: 20191204
  Transmission Date: 20200122
  Serious: No
  Sender: FDA-Public Use
  Company Number: US-PTC THERAPEUTICS, INC.-US-2019PTC001318

PATIENT
  Age: 13 Year
  Sex: Male
  Weight: 57.6 kg

DRUGS (1)
  1. EMFLAZA [Suspect]
     Active Substance: DEFLAZACORT
     Indication: MUSCULAR DYSTROPHY
     Dosage: 45 MG, QD
     Route: 048
     Dates: start: 20180304

REACTIONS (2)
  - Ingrowing nail [Recovered/Resolved]
  - Motor dysfunction [Unknown]

NARRATIVE: CASE EVENT DATE: 201907
